FAERS Safety Report 5506441-3 (Version None)
Quarter: 2007Q4

REPORT INFORMATION
  Report Type: 
  Country: None (occurrence: None)
  Receive Date: 20071101
  Receipt Date: 20071101
  Transmission Date: 20080405
  Serious: Yes (Other)
  Sender: FDA-Public Use
  Company Number: None

PATIENT
  Age: 41 Year
  Sex: Male
  Weight: 81.6475 kg

DRUGS (3)
  1. CHANTIX [Suspect]
     Indication: FRACTURE NONUNION
     Dosage: 0.5MG DAILY X 3 DAYS PO
     Route: 048
  2. CHANTIX [Suspect]
     Indication: SMOKING CESSATION THERAPY
     Dosage: 0.5MG DAILY X 3 DAYS PO
     Route: 048
  3. CHANTIX [Suspect]
     Indication: TIBIA FRACTURE
     Dosage: 0.5MG DAILY X 3 DAYS PO
     Route: 048

REACTIONS (2)
  - AGITATION [None]
  - INSOMNIA [None]
